FAERS Safety Report 22776590 (Version 2)
Quarter: 2023Q4

REPORT INFORMATION
  Report Type: Spontaneous
  Country: ES (occurrence: ES)
  Receive Date: 20230802
  Receipt Date: 20231006
  Transmission Date: 20240110
  Serious: Yes (Death)
  Sender: FDA-Public Use
  Company Number: ES-SA-2022SA381167

PATIENT
  Age: 39 Year
  Sex: Male

DRUGS (7)
  1. TOCILIZUMAB [Suspect]
     Active Substance: TOCILIZUMAB
     Indication: COVID-19
     Dosage: DOSE DESCRIPTION : 600 MG, 1X
     Route: 042
     Dates: start: 20220818, end: 20220818
  2. DEXAMETHASONE [Suspect]
     Active Substance: DEXAMETHASONE
     Indication: COVID-19
     Dosage: DOSE DESCRIPTION : 6 MG, QD
     Route: 065
     Dates: start: 20220818, end: 20220819
  3. ENOXAPARIN SODIUM [Suspect]
     Active Substance: ENOXAPARIN SODIUM
     Indication: Thrombosis prophylaxis
     Dosage: ENOXAPARIN SODIUM 40 MG (4,000 IU) INJECTION 0.4 ML
     Route: 065
     Dates: start: 20220818
  4. ACETAMINOPHEN [Suspect]
     Active Substance: ACETAMINOPHEN
     Indication: Pyrexia
     Dosage: DOSE DESCRIPTION : UNK
     Route: 065
     Dates: start: 20220818, end: 20220819
  5. MEROPENEM [Suspect]
     Active Substance: MEROPENEM
     Indication: Pneumonia
     Dosage: DOSE DESCRIPTION : 1 G, TID
     Route: 065
     Dates: start: 20220818
  6. LINEZOLID [Suspect]
     Active Substance: LINEZOLID
     Indication: Pneumonia
     Dosage: DOSE DESCRIPTION : 600 MG, BID
     Route: 065
     Dates: start: 20220818, end: 20220819
  7. TECLISTAMAB-CQYV [Suspect]
     Active Substance: TECLISTAMAB-CQYV
     Indication: Plasma cell myeloma refractory
     Dosage: DOSE DESCRIPTION : UNK
     Route: 065
     Dates: start: 20220624, end: 20220812

REACTIONS (1)
  - Hepatitis fulminant [Fatal]

NARRATIVE: CASE EVENT DATE: 20220820
